FAERS Safety Report 24597893 (Version 1)
Quarter: 2024Q4

REPORT INFORMATION
  Report Type: Spontaneous
  Country: US (occurrence: US)
  Receive Date: 20241110
  Receipt Date: 20241110
  Transmission Date: 20250114
  Serious: No
  Sender: SANOFI AVENTIS
  Company Number: US-SA-2024SA309313

PATIENT
  Sex: Male
  Weight: 116.12 kg

DRUGS (4)
  1. DUPIXENT [Suspect]
     Active Substance: DUPILUMAB
     Indication: Dermatitis atopic
     Dosage: 300 MG, QOW
     Route: 058
  2. DAPAGLIFLOZIN [Concomitant]
     Active Substance: DAPAGLIFLOZIN
  3. HUMALOG [Concomitant]
     Active Substance: INSULIN LISPRO
  4. MOUNJARO [Concomitant]
     Active Substance: TIRZEPATIDE

REACTIONS (3)
  - Dermal cyst [Unknown]
  - Pruritus [Unknown]
  - Product dose omission issue [Unknown]
